FAERS Safety Report 8875988 (Version 1)
Quarter: 2012Q4

REPORT INFORMATION
  Report Type: 
  Country: US (occurrence: US)
  Receive Date: 20121023
  Receipt Date: 20121023
  Transmission Date: 20130627
  Serious: No
  Sender: FDA-Public Use
  Company Number: US-B.I. PHARMACEUTICALS,INC./RIDGEFIELD-2012-BP-25437BP

PATIENT
  Sex: Female

DRUGS (7)
  1. ZANTAC COOL MINT (TABLETS) [Suspect]
     Indication: DYSPEPSIA
     Dates: start: 201206, end: 201209
  2. ZANTAC COOL MINT (TABLETS) [Suspect]
     Indication: DYSPEPSIA
  3. BUPROPION [Concomitant]
     Indication: DEPRESSION
     Dosage: 150 mg
     Route: 048
     Dates: start: 2003
  4. IRBESARTAN [Concomitant]
     Indication: HYPERTENSION
     Dosage: 20 mg
     Route: 048
     Dates: start: 201209
  5. BABY ASPIRIN [Concomitant]
     Indication: ANTICOAGULANT THERAPY
     Dosage: 81 mg
     Route: 048
     Dates: start: 2002
  6. VITAMIN D [Concomitant]
     Indication: VITAMIN D DECREASED
     Dosage: 2000 U
     Route: 048
     Dates: start: 2009
  7. I-CAPS [Concomitant]
     Indication: EYE DISORDER
     Route: 048

REACTIONS (4)
  - Flatulence [Recovered/Resolved]
  - Weight decreased [Unknown]
  - Blood sodium decreased [Recovered/Resolved]
  - Nausea [Recovered/Resolved]
